FAERS Safety Report 7722687-8 (Version None)
Quarter: 2011Q3

REPORT INFORMATION
  Report Type: 
  Country: None (occurrence: None)
  Receive Date: 20110831
  Receipt Date: 20110822
  Transmission Date: 20111222
  Serious: Yes (Hospitalization)
  Sender: FDA-Public Use
  Company Number: US-ASTRAZENECA-2011SE49308

PATIENT
  Age: 65 Year
  Sex: Female

DRUGS (14)
  1. HYDROCODONE BITARTRATE AND ACETAMINOPHEN [Concomitant]
     Indication: PAIN
  2. TRAMADOL HCL TABLET [Concomitant]
  3. ACIPHEX TABLET [Concomitant]
  4. NEXIUM [Suspect]
     Route: 048
  5. SIMVASTATIN [Concomitant]
     Indication: HYPERCHOLESTEROLAEMIA
  6. PANTOPRAZOLE SODIUM [Concomitant]
  7. BACLOFEN TABLET [Concomitant]
  8. OMEPRAZOLE [Suspect]
     Indication: GASTROOESOPHAGEAL REFLUX DISEASE
     Route: 048
  9. POTASSIUM CHLORIDE CR TABLET [Concomitant]
     Indication: HYPOKALAEMIA
  10. HYDROCHLOROTHIAZIDE [Concomitant]
     Indication: HYPERTENSION
  11. RANITIDINE HCL [Concomitant]
  12. GOLYTELY FOR SOLUTION [Concomitant]
  13. SUCRALFATE [Concomitant]
  14. AMOXICILLIN [Concomitant]
     Indication: HELICOBACTER GASTRITIS

REACTIONS (8)
  - GASTRITIS [None]
  - HYPOKALAEMIA [None]
  - HELICOBACTER GASTRITIS [None]
  - DRUG INEFFECTIVE [None]
  - PAIN [None]
  - HYPERCHOLESTEROLAEMIA [None]
  - HYPERTENSION [None]
  - PEPTIC ULCER [None]
